FAERS Safety Report 10706629 (Version 4)
Quarter: 2015Q1

REPORT INFORMATION
  Report Type: Spontaneous
  Country: DE (occurrence: DE)
  Receive Date: 20150113
  Receipt Date: 20150325
  Transmission Date: 20150721
  Serious: Yes (Hospitalization, Other)
  Sender: FDA-Public Use
  Company Number: PHHY2015DE002722

PATIENT
  Sex: Female
  Weight: 52 kg

DRUGS (6)
  1. CLOZAPINE. [Suspect]
     Active Substance: CLOZAPINE
     Indication: HALLUCINATION
     Dosage: 125 MG (1-1.5- 1 DF QD)
     Route: 048
     Dates: start: 2010
  2. RAMIPRIL. [Suspect]
     Active Substance: RAMIPRIL
     Indication: HYPERTENSION
     Dosage: 2.5 MG, QD
     Route: 048
     Dates: start: 2005
  3. PIRENZEPINE [Suspect]
     Active Substance: PIRENZEPINE
     Indication: DYSPEPSIA
     Dosage: 50 MG, BID
     Route: 048
     Dates: start: 2012
  4. LEVODOPA-CARBIDOPA [Concomitant]
     Active Substance: CARBIDOPA\LEVODOPA
     Indication: PARKINSON^S DISEASE
     Dosage: 1000/250 MG,
     Route: 048
     Dates: start: 2008
  5. RIVASTIGMIN [Concomitant]
     Active Substance: RIVASTIGMINE
     Indication: DEMENTIA
     Dosage: 9.5 MG,
     Route: 062
     Dates: start: 2010
  6. CITALOPRAM [Concomitant]
     Active Substance: CITALOPRAM HYDROBROMIDE
     Indication: DEPRESSION
     Dosage: 20 MG, QD
     Route: 048
     Dates: start: 2010

REACTIONS (6)
  - Parkinson^s disease [Unknown]
  - Hypotension [Unknown]
  - Product use issue [Unknown]
  - Humerus fracture [Recovered/Resolved with Sequelae]
  - Fall [Unknown]
  - Renal failure [Unknown]

NARRATIVE: CASE EVENT DATE: 2010
